FAERS Safety Report 4996958-2 (Version None)
Quarter: 2006Q2

REPORT INFORMATION
  Report Type: 
  Country: None (occurrence: None)
  Receive Date: 20060508
  Receipt Date: 20060508
  Transmission Date: 20061013
  Serious: Yes (Hospitalization)
  Sender: FDA-Public Use
  Company Number: None

PATIENT
  Age: 74 Year
  Sex: Female
  Weight: 105.2345 kg

DRUGS (1)
  1. LEVAQUIN [Suspect]

REACTIONS (1)
  - BLOOD GLUCOSE INCREASED [None]
